FAERS Safety Report 8618351 (Version 6)
Quarter: 2013Q1

REPORT INFORMATION
  Report Type: Spontaneous
  Country: FI (occurrence: FI)
  Receive Date: 20120616
  Receipt Date: 20130208
  Transmission Date: 20140127
  Serious: Yes (Hospitalization, Other)
  Sender: FDA-Public Use
  Company Number: FI-AMGEN-FINSP2012029982

PATIENT
  Age: 25 Year
  Sex: Male
  Weight: 92 kg

DRUGS (19)
  1. ARANESP [Suspect]
     Indication: NEPHROGENIC ANAEMIA
     Dosage: UNK
     Dates: start: 2003
  2. ARANESP [Suspect]
     Dosage: 150 MUG, QWK
     Route: 058
     Dates: start: 20110603
  3. VENOTRIX [Concomitant]
     Indication: IRON DEFICIENCY ANAEMIA
     Dosage: 100 MG, QWK
     Route: 042
     Dates: start: 20111215
  4. RENVELA [Concomitant]
     Indication: HYPERPHOSPHATAEMIA
     Dosage: 800 MG, 4X2 TBL/DAY
     Route: 048
     Dates: start: 20110212
  5. CALCICHEW [Concomitant]
     Indication: HYPERPHOSPHATAEMIA
     Dosage: 500 MG, 8 TBL/DAY
     Route: 048
     Dates: start: 20090424
  6. AMLODIPIN                          /00972401/ [Concomitant]
     Indication: RENAL HYPERTENSION
     Dosage: 10 MG, QD
     Route: 048
     Dates: start: 20040723
  7. CARDACE                            /00574902/ [Concomitant]
     Dosage: 10 MG, QD
  8. PRATSIOL [Concomitant]
     Indication: RENAL HYPERTENSION
     Dosage: 0.5 MG, BID
     Route: 048
     Dates: start: 20110807
  9. SELOKENZOC [Concomitant]
     Indication: RENAL HYPERTENSION
     Dosage: 95 MG, QD
     Route: 048
     Dates: start: 20021224
  10. SELOKENZOC [Concomitant]
     Indication: CONGESTIVE CARDIOMYOPATHY
  11. DISPERIN                           /00002701/ [Concomitant]
     Indication: THROMBOSIS PROPHYLAXIS
     Dosage: 50 MG, QD
     Route: 048
     Dates: start: 20021224
  12. DISPERIN                           /00002701/ [Concomitant]
     Dosage: 10 MG, QD
  13. RENALVITE [Concomitant]
     Indication: VITAMIN SUPPLEMENTATION
     Dosage: 1 DF, QD
     Route: 048
     Dates: start: 20010120
  14. ZEMPLAR [Concomitant]
     Indication: HYPERPARATHYROIDISM SECONDARY
     Dosage: 4 MUG, Q3WK
     Route: 048
     Dates: start: 20120303
  15. RAMIPRIL [Concomitant]
     Indication: CONGESTIVE CARDIOMYOPATHY
     Dosage: 10 MG, QD
     Route: 048
     Dates: start: 20100315
  16. FRAGMIN [Concomitant]
     Indication: ANTICOAGULANT THERAPY
     Dosage: 7500 IU, Q3WK
     Route: 042
     Dates: start: 2011
  17. BLOOD AND RELATED PRODUCTS [Concomitant]
  18. GAMMAGLOBULIN                      /00025201/ [Concomitant]
  19. ROACCUTAN [Concomitant]
     Dosage: UNK
     Dates: end: 20110803

REACTIONS (11)
  - Non-neutralising antibodies positive [Unknown]
  - Liver disorder [Recovered/Resolved]
  - Congestive cardiomyopathy [Not Recovered/Not Resolved]
  - Anti-erythropoietin antibody positive [Unknown]
  - Aplasia pure red cell [Not Recovered/Not Resolved]
  - Influenza [Recovered/Resolved]
  - Dyspnoea [Unknown]
  - Cough [Unknown]
  - Oropharyngeal pain [Unknown]
  - Acne cystic [Recovered/Resolved]
  - Blood pressure increased [Unknown]
